FAERS Safety Report 5497250-2 (Version None)
Quarter: 2007Q4

REPORT INFORMATION
  Report Type: 
  Country: None (occurrence: None)
  Receive Date: 20071025
  Receipt Date: 20060919
  Transmission Date: 20080405
  Serious: No
  Sender: FDA-Public Use
  Company Number: A0620675A

PATIENT
  Age: 7 Year
  Sex: Female

DRUGS (5)
  1. ADVAIR DISKUS 100/50 [Suspect]
     Indication: ASTHMA
     Dosage: 1PUFF TWICE PER DAY
     Route: 055
     Dates: start: 20060811
  2. SINGULAIR [Concomitant]
  3. ALBUTEROL [Concomitant]
  4. PULMICORT [Concomitant]
  5. AMOXICILLIN [Concomitant]

REACTIONS (1)
  - RASH [None]
